FAERS Safety Report 7765251 (Version 3)
Quarter: 2013Q3

REPORT INFORMATION
  Report Type: Report from Study
  Country: FR (occurrence: FR)
  Receive Date: 20110119
  Receipt Date: 20130826
  Transmission Date: 20140515
  Serious: Yes (Hospitalization)
  Sender: FDA-Public Use
  Company Number: PHHO2011FR00762

PATIENT
  Age: 38 Year
  Sex: Male
  Weight: 77 kg

DRUGS (14)
  1. PLACEBO [Suspect]
     Indication: CORONARY ARTERY DISEASE
     Dosage: UNK
     Route: 048
     Dates: start: 20100603, end: 20120529
  2. ALISKIREN [Suspect]
     Indication: CORONARY ARTERY DISEASE
     Dosage: 150 MG, UNK
     Dates: start: 20100526
  3. PLAVIX [Concomitant]
     Indication: CORONARY ARTERY DISEASE
     Dosage: 75 MG, UNK
     Dates: start: 20100427
  4. CARDEGIC [Concomitant]
     Indication: PROPHYLAXIS
     Dosage: 160 MG, UNK
     Dates: start: 20100427
  5. SIMVASTATIN [Concomitant]
     Indication: CORONARY ARTERY DISEASE
     Dosage: 160 MG, UNK
     Dates: start: 20100428
  6. COVERSUM [Concomitant]
     Indication: HYPERTENSION
  7. ISOPTINE [Concomitant]
     Dosage: UNK
     Dates: start: 201012
  8. EUPRESSYL [Concomitant]
     Indication: HYPERTENSION
     Dosage: 120 MG, UNK
     Dates: start: 201004
  9. ESIDREX [Concomitant]
     Indication: HYPERTENSION
     Dosage: UNK
     Dates: start: 20100504
  10. NEXIUM [Concomitant]
  11. VERAPAMIL [Concomitant]
     Indication: HYPERTENSION
     Dosage: 240 MG, UNK
     Dates: start: 201012
  12. EXFORGE [Concomitant]
     Indication: CORONARY ARTERY DISEASE
     Dosage: 1 DF, (106/10 MG)
     Dates: start: 201201
  13. MODURETIC [Concomitant]
     Indication: CORONARY ARTERY DISEASE
     Dosage: 1 DF, (5/50 MG)
     Dates: start: 201104
  14. OMEPRAZOLE [Concomitant]
     Indication: PROPHYLAXIS
     Dosage: 20 MG, UNK
     Dates: start: 20100427

REACTIONS (5)
  - Acute coronary syndrome [Recovered/Resolved]
  - Concomitant disease progression [Recovered/Resolved]
  - Angina pectoris [Recovered/Resolved]
  - Chest pain [Recovered/Resolved]
  - Coronary artery stenosis [Recovered/Resolved]
